FAERS Safety Report 9507488 (Version 1)
Quarter: 2013Q3

REPORT INFORMATION
  Report Type: Spontaneous
  Country: US (occurrence: None)
  Receive Date: 20130904
  Receipt Date: 20130904
  Transmission Date: 20140515
  Serious: Yes (Death)
  Sender: FDA-Public Use
  Company Number: UTC-037149

PATIENT
  Age: 56 Year
  Sex: Female
  Weight: 58.6 kg

DRUGS (4)
  1. REMODULIN (2.5 MILLIGRAM/MILLILITERS, INJECTION FOR INFUSION) (TREPROSTINIL SODIUM) [Suspect]
     Indication: PULMONARY ARTERIAL HYPERTENSION
     Dosage: 56.16 UG/KG (0.039 UG/KG, 1 IN 1 MIN)
     Route: 041
     Dates: start: 20120904
  2. ADCIRCA (TADALAFIL) (UNKNOWN) [Concomitant]
  3. WARFARIN (UNKNOWN) [Concomitant]
  4. TRACLEER (BOSENTAN) (UNKNOWN) [Concomitant]

REACTIONS (1)
  - Death [None]
